FAERS Safety Report 5417832-3 (Version None)
Quarter: 2007Q3

REPORT INFORMATION
  Report Type: 
  Country: None (occurrence: None)
  Receive Date: 20070817
  Receipt Date: 20070814
  Transmission Date: 20080115
  Serious: Yes (Other)
  Sender: FDA-Public Use
  Company Number: PHEH2006US01235

PATIENT

DRUGS (3)
  1. ZOMETA [Suspect]
  2. AREDIA [Suspect]
     Dosage: UNK, UNK
  3. ZOLOFT [Concomitant]
     Dosage: UNK, UNK

REACTIONS (6)
  - ALVEOLAR OSTEITIS [None]
  - IMPAIRED HEALING [None]
  - ORAL SURGERY [None]
  - OSTEONECROSIS [None]
  - PAIN [None]
  - TOOTH EXTRACTION [None]
